FAERS Safety Report 13239465 (Version 1)
Quarter: 2017Q1

REPORT INFORMATION
  Report Type: Spontaneous
  Country: US (occurrence: US)
  Receive Date: 20170216
  Receipt Date: 20170216
  Transmission Date: 20170428
  Serious: Yes (Other)
  Sender: FDA-Public Use
  Company Number: US-BAYER-2017-031202

PATIENT
  Sex: Female

DRUGS (1)
  1. SKYLA [Suspect]
     Active Substance: LEVONORGESTREL
     Dosage: 14 MCG/24HR, CONT
     Route: 015
     Dates: start: 2016

REACTIONS (5)
  - Device issue [None]
  - Drug ineffective [None]
  - Amenorrhoea [None]
  - Pregnancy with contraceptive device [None]
  - Haemorrhage in pregnancy [None]

NARRATIVE: CASE EVENT DATE: 201612
